FAERS Safety Report 17153885 (Version 1)
Quarter: 2019Q4

REPORT INFORMATION
  Report Type: Spontaneous
  Country: US (occurrence: US)
  Receive Date: 20191213
  Receipt Date: 20191213
  Transmission Date: 20200122
  Serious: No
  Sender: FDA-Public Use
  Company Number: US-TEVA-2019-US-1151938

PATIENT
  Age: 78 Year
  Sex: Male

DRUGS (2)
  1. METOPROLOL. [Suspect]
     Active Substance: METOPROLOL
     Indication: ATRIAL FIBRILLATION
     Dosage: PATIENT TOOK METOPROLOL TARTRATE TABLETS OR METOPROLOL SUCCINATE EXTENDED RELEASE TABLETS
     Route: 065
     Dates: start: 201910
  2. METOPROLOL. [Suspect]
     Active Substance: METOPROLOL
     Indication: HEART RATE INCREASED
     Route: 065
     Dates: start: 201910

REACTIONS (2)
  - Chapped lips [Unknown]
  - Dry mouth [Unknown]
